FAERS Safety Report 4964787-1 (Version None)
Quarter: 2006Q2

REPORT INFORMATION
  Report Type: 
  Country: None (occurrence: None)
  Receive Date: 20060406
  Receipt Date: 20060329
  Transmission Date: 20061013
  Serious: Yes (Hospitalization)
  Sender: FDA-Public Use
  Company Number: KR-ROCHE-441996

PATIENT
  Sex: Male
  Weight: 93 kg

DRUGS (2)
  1. PEGASYS [Suspect]
     Indication: HEPATITIS C
     Dosage: FORM: VIAL.
     Route: 058
     Dates: start: 20050915, end: 20051115
  2. PEGASYS [Suspect]
     Dosage: DOSE DECREASED AFTER THE WBC DECREASED.
     Route: 058

REACTIONS (5)
  - DIZZINESS [None]
  - PYREXIA [None]
  - SYNCOPE [None]
  - WEIGHT DECREASED [None]
  - WHITE BLOOD CELL COUNT DECREASED [None]
